FAERS Safety Report 23331421 (Version 1)
Quarter: 2023Q4

REPORT INFORMATION
  Report Type: Spontaneous
  Country: CN (occurrence: CN)
  Receive Date: 20231222
  Receipt Date: 20231222
  Transmission Date: 20240110
  Serious: Yes (Other)
  Sender: FDA-Public Use
  Company Number: CN-BRACCO-2023CN06822

PATIENT
  Age: 50 Year
  Sex: Male

DRUGS (3)
  1. SULFUR HEXAFLUORIDE [Suspect]
     Active Substance: SULFUR HEXAFLUORIDE
     Indication: Ultrasound urinary system
     Dosage: 2.0 ML, SINGLE
     Route: 042
     Dates: start: 20231213, end: 20231213
  2. SULFUR HEXAFLUORIDE [Suspect]
     Active Substance: SULFUR HEXAFLUORIDE
     Indication: Ultrasound urinary system
     Dosage: 2.0 ML, SINGLE
     Route: 042
     Dates: start: 20231213, end: 20231213
  3. SULFUR HEXAFLUORIDE [Suspect]
     Active Substance: SULFUR HEXAFLUORIDE
     Indication: Ultrasound urinary system
     Dosage: 2.0 ML, SINGLE
     Route: 042
     Dates: start: 20231213, end: 20231213

REACTIONS (4)
  - Cerebral haemorrhage [Unknown]
  - Headache [Unknown]
  - Vomiting [Unknown]
  - Hypoaesthesia [Unknown]

NARRATIVE: CASE EVENT DATE: 20231213
